FAERS Safety Report 19733863 (Version 2)
Quarter: 2021Q3

REPORT INFORMATION
  Report Type: Report from Study
  Country: US (occurrence: US)
  Receive Date: 20210824
  Receipt Date: 20210918
  Transmission Date: 20211014
  Serious: Yes (Hospitalization, Other)
  Sender: FDA-Public Use
  Company Number: US-AUROBINDO-AUR-APL-2021-035494

PATIENT
  Sex: Male
  Weight: 88.6 kg

DRUGS (2)
  1. BELINOSTAT [Suspect]
     Active Substance: BELINOSTAT
     Indication: CHONDROSARCOMA
     Dosage: UNK
     Route: 065
     Dates: start: 20200914, end: 20200918
  2. GUADECITABINE [Suspect]
     Active Substance: GUADECITABINE
     Indication: CHONDROSARCOMA
     Dosage: UNK
     Route: 065
     Dates: start: 20200914, end: 20200918

REACTIONS (1)
  - Transient ischaemic attack [Recovered/Resolved]

NARRATIVE: CASE EVENT DATE: 20201003
